FAERS Safety Report 9796601 (Version 2)
Quarter: 2014Q1

REPORT INFORMATION
  Report Type: Report from Study
  Country: JP (occurrence: JP)
  Receive Date: 20140103
  Receipt Date: 20140103
  Transmission Date: 20141002
  Serious: Yes (Hospitalization)
  Sender: FDA-Public Use
  Company Number: JP-BRISTOL-MYERS SQUIBB COMPANY-19230572

PATIENT
  Age: 58 Year
  Sex: Female
  Weight: 42.5 kg

DRUGS (13)
  1. ORENCIA FOR INJ 250 MG/VIAL [Suspect]
     Indication: RHEUMATOID ARTHRITIS
     Dosage: 1DF:05JAN12,28SEP12:500MG
     Route: 042
     Dates: start: 20120105
  2. PREDNISOLONE [Concomitant]
     Indication: RHEUMATOID ARTHRITIS
     Dosage: TABS;1DF:31JAN12-08JUN12:5MG/D?09JUN12-31AUG12:4MG/D?01SEP12-09OCT12:3MG/D?01APR11-31JAN12:3MG/D
     Route: 048
  3. TRYPTANOL [Concomitant]
     Dates: start: 20060809
  4. OLMETEC [Concomitant]
     Dates: start: 20091216
  5. BAYASPIRIN [Concomitant]
     Dates: start: 20031126
  6. CARDENALIN [Concomitant]
     Dates: start: 20041110
  7. RENIVACE [Concomitant]
     Dates: start: 20060712
  8. PARIET [Concomitant]
     Dates: start: 20060206
  9. VOLTAREN [Concomitant]
     Indication: RHEUMATOID ARTHRITIS
     Dates: start: 20061109
  10. FERRUM [Concomitant]
     Dates: start: 20090708
  11. FLUITRAN [Concomitant]
     Dates: start: 20111028
  12. GASTROM [Concomitant]
     Indication: PROPHYLAXIS
  13. ALINAMIN-F [Concomitant]
     Dates: start: 20121009, end: 20121015

REACTIONS (1)
  - Encephalopathy [Recovering/Resolving]
